FAERS Safety Report 16646472 (Version 2)
Quarter: 2019Q3

REPORT INFORMATION
  Report Type: Spontaneous
  Country: US (occurrence: US)
  Receive Date: 20190730
  Receipt Date: 20190829
  Transmission Date: 20191004
  Serious: No
  Sender: FDA-Public Use
  Company Number: US-AMGEN-USASP2019119592

PATIENT
  Age: 44 Year
  Sex: Male
  Weight: 82.54 kg

DRUGS (5)
  1. 5-FU [Concomitant]
     Active Substance: FLUOROURACIL
     Indication: COLON CANCER
     Dosage: 620 MG AND 3760 MG, Q2WK
     Dates: start: 20181023
  2. CAMPTOSAR [Concomitant]
     Active Substance: IRINOTECAN HYDROCHLORIDE
     Indication: COLON CANCER
     Dosage: 282 MILLIGRAM, Q2WK
     Dates: start: 20181023
  3. VECTIBIX [Suspect]
     Active Substance: PANITUMUMAB
     Indication: COLON CANCER
     Dosage: 490 MILLIGRAM
     Route: 065
     Dates: start: 20181023
  4. LEUCOVORINE [Concomitant]
     Active Substance: LEUCOVORIN
     Indication: COLON CANCER
     Dosage: 627 MILLIGRAM, Q2WK
     Dates: start: 20181023
  5. NEULASTA [Suspect]
     Active Substance: PEGFILGRASTIM
     Indication: PRODUCT USED FOR UNKNOWN INDICATION
     Dosage: UNK
     Route: 065

REACTIONS (3)
  - Stomatitis [Recovering/Resolving]
  - Skin exfoliation [Recovering/Resolving]
  - Exfoliative rash [Recovering/Resolving]
